FAERS Safety Report 18011028 (Version 1)
Quarter: 2020Q3

REPORT INFORMATION
  Report Type: Report from Study
  Country: None (occurrence: US)
  Receive Date: 20200710
  Receipt Date: 20200710
  Transmission Date: 20201103
  Serious: Yes (Other)
  Sender: FDA-Public Use
  Company Number: US-ABBVIE-20K-163-3473322-00

PATIENT
  Sex: Female

DRUGS (1)
  1. HUMIRA [Suspect]
     Active Substance: ADALIMUMAB
     Indication: BEHCET^S SYNDROME
     Dosage: HUMIRA CF
     Route: 058
     Dates: start: 202004

REACTIONS (10)
  - Memory impairment [Unknown]
  - Impaired healing [Not Recovered/Not Resolved]
  - Burns third degree [Not Recovered/Not Resolved]
  - Inappropriate schedule of product administration [Not Recovered/Not Resolved]
  - Off label use [Not Recovered/Not Resolved]
  - Behcet^s syndrome [Not Recovered/Not Resolved]
  - Stress [Not Recovered/Not Resolved]
  - Neurological symptom [Not Recovered/Not Resolved]
  - Blindness [Unknown]
  - Infected skin ulcer [Unknown]

NARRATIVE: CASE EVENT DATE: 2020
